FAERS Safety Report 24793322 (Version 1)
Quarter: 2024Q4

REPORT INFORMATION
  Report Type: Report from Study
  Country: IN (occurrence: IN)
  Receive Date: 20241231
  Receipt Date: 20241231
  Transmission Date: 20250114
  Serious: Yes (Death)
  Sender: ROCHE
  Company Number: IN-ROCHE-10000150614

PATIENT
  Age: 59 Year
  Sex: Female

DRUGS (3)
  1. ENTRECTINIB [Suspect]
     Active Substance: ENTRECTINIB
     Indication: Non-small cell lung cancer
     Route: 065
     Dates: start: 20220610
  2. PEMETREXED [Suspect]
     Active Substance: PEMETREXED
     Indication: Non-small cell lung cancer
     Route: 065
     Dates: start: 20211214, end: 20220315
  3. CARBOPLATIN [Suspect]
     Active Substance: CARBOPLATIN
     Indication: Non-small cell lung cancer
     Dosage: AUC 5 (RECEIVED 4 CYCLES)
     Route: 065
     Dates: start: 20211214, end: 20220315

REACTIONS (4)
  - Fatigue [Unknown]
  - Thrombocytopenia [Unknown]
  - Neutropenia [Unknown]
  - Sudden cardiac death [Fatal]

NARRATIVE: CASE EVENT DATE: 20241124
